FAERS Safety Report 22356652 (Version 1)
Quarter: 2023Q2

REPORT INFORMATION
  Report Type: Spontaneous
  Country: FR (occurrence: FR)
  Receive Date: 20230523
  Receipt Date: 20230523
  Transmission Date: 20230722
  Serious: Yes (Hospitalization)
  Sender: FDA-Public Use
  Company Number: None

PATIENT
  Age: 76 Year
  Sex: Male

DRUGS (8)
  1. PANTOPRAZOLE [Suspect]
     Active Substance: PANTOPRAZOLE
     Indication: Anaemia
     Dosage: 40 MILLIGRAM, QD
     Route: 048
     Dates: start: 20230401, end: 20230502
  2. FUROSEMIDE [Suspect]
     Active Substance: FUROSEMIDE
     Indication: Hypertension
     Dosage: 40 MILLIGRAM, QOD
     Route: 048
     Dates: end: 20230501
  3. KEPPRA [Suspect]
     Active Substance: LEVETIRACETAM
     Dosage: 750 MILLIGRAM
     Route: 065
     Dates: start: 20230430
  4. KEPPRA [Suspect]
     Active Substance: LEVETIRACETAM
     Dosage: 500 MILLIGRAM, QOD
     Route: 048
  5. NEBIVOLOL [Suspect]
     Active Substance: NEBIVOLOL
     Indication: Hypertension
     Dosage: UNK UNK, BID
     Route: 048
  6. ARANESP [Suspect]
     Active Substance: DARBEPOETIN ALFA
     Indication: Anaemia
     Dosage: 100 MICROGRAM, 1/WEEK
     Route: 048
     Dates: start: 202212
  7. CALCIUM CARBONATE [Suspect]
     Active Substance: CALCIUM CARBONATE
     Indication: End stage renal disease
     Dosage: 1 DOSAGE FORM, QD
     Route: 048
  8. SEVELAMER CARBONATE [Suspect]
     Active Substance: SEVELAMER CARBONATE
     Indication: End stage renal disease
     Dosage: 1 DOSAGE FORM, QD
     Route: 048
     Dates: end: 20230428

REACTIONS (3)
  - Rash maculo-papular [Not Recovered/Not Resolved]
  - Eosinophilia [Not Recovered/Not Resolved]
  - Off label use [Unknown]

NARRATIVE: CASE EVENT DATE: 20230401
